FAERS Safety Report 12731380 (Version 1)
Quarter: 2016Q3

REPORT INFORMATION
  Report Type: Spontaneous
  Country: DE (occurrence: DE)
  Receive Date: 20160912
  Receipt Date: 20160912
  Transmission Date: 20161109
  Serious: Yes (Hospitalization, Other)
  Sender: FDA-Public Use
  Company Number: DE-BAUSCH-BL-2016-021834

PATIENT
  Age: 29 Year
  Sex: Male

DRUGS (7)
  1. ELONTRIL [Suspect]
     Active Substance: BUPROPION HYDROCHLORIDE
     Indication: PRODUCT USED FOR UNKNOWN INDICATION
     Route: 065
     Dates: start: 2016
  2. ELONTRIL [Suspect]
     Active Substance: BUPROPION HYDROCHLORIDE
     Route: 065
  3. ELONTRIL [Suspect]
     Active Substance: BUPROPION HYDROCHLORIDE
     Route: 065
  4. ELONTRIL [Suspect]
     Active Substance: BUPROPION HYDROCHLORIDE
     Dosage: 150 MG, Z, 3-4 TABLETS
  5. ELONTRIL [Suspect]
     Active Substance: BUPROPION HYDROCHLORIDE
     Dosage: 300 MG, Z, SEVERAL TABLETS
  6. VENLAFAXINE [Suspect]
     Active Substance: VENLAFAXINE HYDROCHLORIDE
     Indication: DEPRESSION
     Route: 065
  7. VALDOXAN [Suspect]
     Active Substance: AGOMELATINE
     Indication: DEPRESSION
     Route: 065

REACTIONS (14)
  - Abnormal behaviour [Recovering/Resolving]
  - Amnesia [Recovering/Resolving]
  - Intentional product use issue [Unknown]
  - Therapeutic response unexpected [Unknown]
  - Overdose [Unknown]
  - Seizure [Recovering/Resolving]
  - Screaming [Recovering/Resolving]
  - Delirium [Recovering/Resolving]
  - Intentional product misuse [Unknown]
  - Insomnia [Recovering/Resolving]
  - Hallucination [Recovering/Resolving]
  - Ill-defined disorder [Recovering/Resolving]
  - Drug abuse [Unknown]
  - Hallucination, auditory [Recovering/Resolving]

NARRATIVE: CASE EVENT DATE: 2016
